FAERS Safety Report 13227591 (Version 1)
Quarter: 2017Q1

REPORT INFORMATION
  Report Type: Report from Study
  Country: IT (occurrence: IT)
  Receive Date: 20170213
  Receipt Date: 20170213
  Transmission Date: 20170428
  Serious: Yes (Other)
  Sender: FDA-Public Use
  Company Number: IT-MYLANLABS-2017M1006950

PATIENT

DRUGS (4)
  1. RYTMONORM 425 MG CAPSULE RIGIDE A RILASCIO PROLUNGATO [Suspect]
     Active Substance: PROPAFENONE HYDROCHLORIDE
     Indication: ARRHYTHMIA
     Dosage: 425 MG DAILY
     Route: 048
     Dates: start: 20150101
  2. COUMADIN [Concomitant]
     Active Substance: WARFARIN SODIUM
     Indication: ANTICOAGULANT THERAPY
     Dosage: UNK
     Route: 048
     Dates: start: 20150101, end: 20160307
  3. PRADIF [Suspect]
     Active Substance: TAMSULOSIN HYDROCHLORIDE
     Indication: BENIGN PROSTATIC HYPERPLASIA
     Dosage: .4 MG DAILY
     Route: 048
     Dates: start: 20150101
  4. RYTMOBETA 80 MG COMPRESSE [Suspect]
     Active Substance: SOTALOL HYDROCHLORIDE
     Indication: ARRHYTHMIA
     Dosage: 1.5 DF DAILY
     Route: 048
     Dates: start: 20150101, end: 20160307

REACTIONS (4)
  - Malaise [Unknown]
  - Orthostatic hypotension [Recovering/Resolving]
  - Vertigo [Recovering/Resolving]
  - Bradycardia [Unknown]

NARRATIVE: CASE EVENT DATE: 20160305
